FAERS Safety Report 19352711 (Version 1)
Quarter: 2021Q2

REPORT INFORMATION
  Report Type: Spontaneous
  Country: US (occurrence: US)
  Receive Date: 20210601
  Receipt Date: 20210601
  Transmission Date: 20210717
  Serious: Yes (Other)
  Sender: FDA-Public Use
  Company Number: US-SA-2021SA172240

PATIENT
  Age: 82 Year
  Sex: Female
  Weight: 74.8 kg

DRUGS (11)
  1. BYSTOLIC [Concomitant]
     Active Substance: NEBIVOLOL HYDROCHLORIDE
  2. CARVEDILOL. [Concomitant]
     Active Substance: CARVEDILOL
  3. LIPITOR [Concomitant]
     Active Substance: ATORVASTATIN CALCIUM
  4. PLAVIX [Suspect]
     Active Substance: CLOPIDOGREL BISULFATE
     Dosage: 5 MG, BID
     Route: 048
  5. CALCIUM [Concomitant]
     Active Substance: CALCIUM
  6. ASPIRINA [Concomitant]
     Active Substance: ASPIRIN
     Indication: PAIN
  7. AMLODIPINE [Concomitant]
     Active Substance: AMLODIPINE BESYLATE
  8. COLLAGEN [Concomitant]
     Active Substance: COLLAGEN
  9. VITAMIN B NOS [Concomitant]
     Active Substance: VITAMIN B
  10. ELIQUIS [Concomitant]
     Active Substance: APIXABAN
  11. XARELTO [Concomitant]
     Active Substance: RIVAROXABAN

REACTIONS (9)
  - Cough [Unknown]
  - Atrial fibrillation [Unknown]
  - Transient ischaemic attack [Unknown]
  - Neuropathy peripheral [Unknown]
  - Scoliosis [Unknown]
  - Muscle spasms [Unknown]
  - Pain [Unknown]
  - Asthenia [Unknown]
  - Lymphoedema [Unknown]
